FAERS Safety Report 10147909 (Version 2)
Quarter: 2014Q2

REPORT INFORMATION
  Report Type: Spontaneous
  Country: CA (occurrence: CA)
  Receive Date: 20140501
  Receipt Date: 20140519
  Transmission Date: 20141212
  Serious: Yes (Other)
  Sender: FDA-Public Use
  Company Number: CA-TAKEDA-2014TUS003372

PATIENT
  Age: 63 Year
  Sex: Male

DRUGS (13)
  1. ULORIC [Suspect]
     Indication: PROPHYLAXIS
     Dosage: 40 MG, QD
     Route: 048
     Dates: start: 20130723, end: 20130822
  2. ASA [Concomitant]
     Dosage: 81 MG, QD
     Route: 048
  3. CITALOPRAM [Concomitant]
     Dosage: 20 MG, QD
     Route: 048
  4. DOXAZOSIN [Concomitant]
     Dosage: 1 MG, QD
     Route: 048
  5. COLCHICINE [Concomitant]
     Dosage: 0.6 MG, BID
     Route: 048
  6. ACEBUTOLOL [Concomitant]
     Dosage: 100 MG, BID
     Route: 048
  7. LEVOTHYROXINE [Concomitant]
     Dosage: 112 ?G, QD
     Route: 048
  8. PANTOPRAZOLE [Concomitant]
     Dosage: 40 MG, QD
     Route: 048
  9. AMLODIPINE [Concomitant]
     Dosage: 10 MG, QD
     Route: 048
  10. RAMIPRIL [Concomitant]
     Dosage: 10 MG, BID
     Route: 048
  11. FUROSEMIDE [Concomitant]
     Dosage: 10 MG AND 20 MG, ALTERNATE
     Route: 065
  12. RENAVITE MULTIVIT [Concomitant]
     Dosage: UNK, QD
     Route: 048
  13. VITAMIN B12                        /00056201/ [Concomitant]
     Dosage: 500 MG, QD
     Route: 065

REACTIONS (2)
  - Rash pruritic [Recovered/Resolved]
  - Hypotension [Recovered/Resolved]
